FAERS Safety Report 6696471-0 (Version None)
Quarter: 2010Q2

REPORT INFORMATION
  Report Type: 
  Country: None (occurrence: None)
  Receive Date: 20100426
  Receipt Date: 20100416
  Transmission Date: 20101027
  Serious: Yes (Other)
  Sender: FDA-Public Use
  Company Number: US-JNJFOC-20100404972

PATIENT
  Sex: Female
  Weight: 58.97 kg

DRUGS (6)
  1. DURAGESIC-100 [Suspect]
     Indication: PAIN
     Route: 062
  2. DURAGESIC-100 [Suspect]
     Indication: NERVE INJURY
     Route: 062
  3. DURAGESIC-100 [Suspect]
     Indication: INTERVERTEBRAL DISC DEGENERATION
     Route: 062
  4. DURAGESIC-100 [Suspect]
     Dosage: NDC 50458-0094-05
     Route: 062
  5. DURAGESIC-100 [Suspect]
     Dosage: NDC 50458-0094-05
     Route: 062
  6. DURAGESIC-100 [Suspect]
     Dosage: NDC 50458-0094-05
     Route: 062

REACTIONS (4)
  - CONVULSION [None]
  - PRODUCT ADHESION ISSUE [None]
  - WITHDRAWAL SYNDROME [None]
  - WRONG TECHNIQUE IN DRUG USAGE PROCESS [None]
